FAERS Safety Report 7692508-0 (Version None)
Quarter: 2011Q3

REPORT INFORMATION
  Report Type: 
  Country: None (occurrence: None)
  Receive Date: 20110819
  Receipt Date: 20110815
  Transmission Date: 20111222
  Serious: Yes (Hospitalization)
  Sender: FDA-Public Use
  Company Number: US-BRISTOL-MYERS SQUIBB COMPANY-15936487

PATIENT
  Age: 57 Year

DRUGS (7)
  1. PEPCID [Concomitant]
  2. DILANTIN [Concomitant]
  3. KEPPRA [Concomitant]
  4. YERVOY [Suspect]
     Indication: MALIGNANT MELANOMA
     Route: 042
     Dates: start: 20110616
  5. CIPROFLOXACIN [Concomitant]
  6. ARANESP [Concomitant]
  7. COMPAZINE [Concomitant]

REACTIONS (2)
  - PERITONEAL HAEMORRHAGE [None]
  - DIARRHOEA [None]
